FAERS Safety Report 12612887 (Version 1)
Quarter: 2016Q3

REPORT INFORMATION
  Report Type: Spontaneous
  Country: US (occurrence: US)
  Receive Date: 20160802
  Receipt Date: 20160802
  Transmission Date: 20161109
  Serious: Yes (Other)
  Sender: FDA-Public Use
  Company Number: US-ROCHE-1806568

PATIENT
  Sex: Female

DRUGS (5)
  1. ACTEMRA [Suspect]
     Active Substance: TOCILIZUMAB
     Indication: PRODUCT USED FOR UNKNOWN INDICATION
     Route: 058
  2. PEPCID [Concomitant]
     Active Substance: FAMOTIDINE
  3. PREDNISONE. [Concomitant]
     Active Substance: PREDNISONE
  4. METHOTREXATE. [Concomitant]
     Active Substance: METHOTREXATE
  5. ALEVE [Concomitant]
     Active Substance: NAPROXEN SODIUM

REACTIONS (5)
  - Abdominal pain [Unknown]
  - Gastric ulcer [Unknown]
  - Dyspepsia [Unknown]
  - Eructation [Unknown]
  - Pollakiuria [Unknown]
